FAERS Safety Report 6394348-1 (Version None)
Quarter: 2009Q4

REPORT INFORMATION
  Report Type: 
  Country: None (occurrence: None)
  Receive Date: 20091006
  Receipt Date: 20090923
  Transmission Date: 20100525
  Serious: Yes (Hospitalization)
  Sender: FDA-Public Use
  Company Number: 230048J09AUS

PATIENT
  Age: 59 Year
  Sex: Female

DRUGS (1)
  1. REBIF [Suspect]
     Indication: RELAPSING-REMITTING MULTIPLE SCLEROSIS
     Dosage: 44 MCG, 3 IN 1 WEEKS, SUBCUTANEOUS
     Route: 058
     Dates: start: 20060113

REACTIONS (5)
  - BREAST CANCER FEMALE [None]
  - DEVICE FAILURE [None]
  - INJECTION SITE ERYTHEMA [None]
  - INJECTION SITE SCAB [None]
  - WRONG TECHNIQUE IN DRUG USAGE PROCESS [None]
